FAERS Safety Report 7435439-3 (Version None)
Quarter: 2011Q2

REPORT INFORMATION
  Report Type: 
  Country: None (occurrence: None)
  Receive Date: 20110425
  Receipt Date: 20110420
  Transmission Date: 20111010
  Serious: Yes (Life-Threatening, Hospitalization, Disabling, Other)
  Sender: FDA-Public Use
  Company Number: US-MERCK-1104USA02893

PATIENT
  Age: 70 Year
  Sex: Male

DRUGS (1)
  1. JANUVIA [Suspect]
     Route: 048
     Dates: start: 20080331

REACTIONS (2)
  - CHOLELITHIASIS [None]
  - PANCREATITIS [None]
